FAERS Safety Report 9308978 (Version 2)
Quarter: 2013Q3

REPORT INFORMATION
  Report Type: Report from Study
  Country: US (occurrence: US)
  Receive Date: 20130524
  Receipt Date: 20130830
  Transmission Date: 20140515
  Serious: Yes (Life-Threatening)
  Sender: FDA-Public Use
  Company Number: US-ABBOTT-13P-163-1094968-00

PATIENT
  Age: 64 Year
  Sex: Female
  Weight: 102.6 kg

DRUGS (11)
  1. HUMIRA [Suspect]
     Indication: PSORIASIS
     Dosage: 80 MG (BASELINE)
     Route: 058
     Dates: start: 20111101, end: 20111101
  2. HUMIRA [Suspect]
     Route: 058
  3. HUMIRA [Suspect]
     Route: 058
  4. TOPICALS [Concomitant]
     Indication: PSORIASIS
     Route: 061
     Dates: start: 201101
  5. CORTICOSTEROIDS [Concomitant]
     Indication: PSORIASIS
     Route: 061
     Dates: start: 201106
  6. ITRACONAZOLE [Concomitant]
     Indication: HISTOPLASMOSIS
     Dates: start: 20120607
  7. BENICAR [Concomitant]
     Indication: HYPERTENSION
     Dates: start: 2009
  8. LANTUS [Concomitant]
     Indication: DIABETES MELLITUS
     Dates: start: 20040101
  9. LEVOTHYROXINE [Concomitant]
     Indication: THYROID DISORDER
     Dates: start: 201204
  10. TRADJENTA [Concomitant]
     Indication: DIABETES MELLITUS
     Dates: start: 201101
  11. LIPITOR [Concomitant]
     Indication: HYPERLIPIDAEMIA
     Dates: start: 2002

REACTIONS (1)
  - Thyroid cancer [Recovered/Resolved]
